FAERS Safety Report 12414986 (Version 3)
Quarter: 2016Q3

REPORT INFORMATION
  Report Type: Report from Study
  Country: GR (occurrence: GR)
  Receive Date: 20160530
  Receipt Date: 20160710
  Transmission Date: 20161109
  Serious: Yes (Hospitalization)
  Sender: FDA-Public Use
  Company Number: GR-AMGEN-GRCNI2016067229

PATIENT
  Age: 77 Year
  Sex: Male

DRUGS (6)
  1. XGEVA [Suspect]
     Active Substance: DENOSUMAB
     Indication: PRODUCT USED FOR UNKNOWN INDICATION
     Dosage: UNK
     Route: 065
  2. DENOSUMAB [Suspect]
     Active Substance: DENOSUMAB
     Indication: PRODUCT USED FOR UNKNOWN INDICATION
     Dosage: UNK
     Route: 065
  3. IRON [Concomitant]
     Active Substance: IRON
     Dosage: 3.5 MG, QD
     Route: 058
     Dates: start: 20160522
  4. INNOHEP [Concomitant]
     Active Substance: TINZAPARIN SODIUM
     Dosage: 4.5 MG, UNK
     Route: 058
     Dates: start: 20160628, end: 20160628
  5. ZOMETA [Suspect]
     Active Substance: ZOLEDRONIC ACID
     Indication: PRODUCT USED FOR UNKNOWN INDICATION
     Dosage: UNK
     Route: 065
  6. LUMAREN [Concomitant]
     Dosage: 50 MG, QD
     Route: 042
     Dates: start: 20160523, end: 20160701

REACTIONS (1)
  - Osteonecrosis of jaw [Not Recovered/Not Resolved]

NARRATIVE: CASE EVENT DATE: 20160520
